FAERS Safety Report 5449646-2 (Version None)
Quarter: 2007Q3

REPORT INFORMATION
  Report Type: 
  Country: None (occurrence: None)
  Receive Date: 20070912
  Receipt Date: 20070905
  Transmission Date: 20080115
  Serious: Yes (Other)
  Sender: FDA-Public Use
  Company Number: PHEH2007US11817

PATIENT
  Age: 61 Year
  Sex: Female
  Weight: 92.063 kg

DRUGS (9)
  1. TEKTURNA [Suspect]
     Indication: HYPERTENSION
     Dosage: 150 MG, QD
     Route: 048
     Dates: start: 20070816, end: 20070818
  2. AVALIDE [Concomitant]
  3. LASIX [Concomitant]
  4. ZOCOR [Concomitant]
  5. NORVASC [Concomitant]
  6. SINGULAIR [Concomitant]
  7. ADVAIR DISKUS 100/50 [Concomitant]
     Dosage: 250/50 MG
  8. ADVAIR DISKUS 100/50 [Concomitant]
     Dosage: 500/50 MG
     Dates: start: 20070827
  9. CELEBREX [Concomitant]

REACTIONS (6)
  - ASTHMA [None]
  - COUGH [None]
  - DYSPNOEA [None]
  - FEELING ABNORMAL [None]
  - FORCED EXPIRATORY VOLUME DECREASED [None]
  - WHEEZING [None]
